FAERS Safety Report 26018841 (Version 1)
Quarter: 2025Q4

REPORT INFORMATION
  Report Type: Spontaneous
  Country: US (occurrence: US)
  Receive Date: 20251110
  Receipt Date: 20251110
  Transmission Date: 20260117
  Serious: No
  Sender: ANI
  Company Number: US-ANIPHARMA-031070

PATIENT
  Sex: Female

DRUGS (1)
  1. THYROID [Suspect]
     Active Substance: LEVOTHYROXINE\LIOTHYRONINE
     Indication: Product used for unknown indication

REACTIONS (3)
  - Product dispensing error [Unknown]
  - Feeling abnormal [Unknown]
  - Asthenia [Unknown]
